FAERS Safety Report 16128702 (Version 1)
Quarter: 2019Q1

REPORT INFORMATION
  Report Type: Report from Study
  Country: None (occurrence: CA)
  Receive Date: 20190328
  Receipt Date: 20190328
  Transmission Date: 20190418
  Serious: Yes (Other)
  Sender: FDA-Public Use
  Company Number: CA-ABBVIE-19K-028-2721033-00

PATIENT
  Age: 34 Year
  Sex: Male

DRUGS (2)
  1. HUMIRA [Suspect]
     Active Substance: ADALIMUMAB
     Indication: CROHN^S DISEASE
     Dosage: LOADING DOSE
     Route: 058
     Dates: start: 20190320, end: 20190320
  2. HUMIRA [Suspect]
     Active Substance: ADALIMUMAB
     Route: 058
     Dates: start: 20190320, end: 20190320

REACTIONS (6)
  - Loss of consciousness [Unknown]
  - Pallor [Unknown]
  - Asthenia [Unknown]
  - Anxiety [Not Recovered/Not Resolved]
  - Fear of injection [Unknown]
  - Syncope [Unknown]

NARRATIVE: CASE EVENT DATE: 20190320
